FAERS Safety Report 15880540 (Version 1)
Quarter: 2019Q1

REPORT INFORMATION
  Report Type: Spontaneous
  Country: FR (occurrence: FR)
  Receive Date: 20190128
  Receipt Date: 20190128
  Transmission Date: 20190417
  Serious: Yes (Hospitalization)
  Sender: FDA-Public Use
  Company Number: FR-TEVA-2019-FR-1002913

PATIENT
  Age: 69 Year
  Sex: Female
  Weight: 59.5 kg

DRUGS (23)
  1. COLCHICINE. [Suspect]
     Active Substance: COLCHICINE
     Indication: GOUTY TOPHUS
     Dosage: .5 MILLIGRAM DAILY;
     Route: 048
     Dates: start: 20181130, end: 20181219
  2. METFORMINE [Concomitant]
     Active Substance: METFORMIN HYDROCHLORIDE
  3. PANTOPRAZOLE [Suspect]
     Active Substance: PANTOPRAZOLE
     Indication: PRODUCT USED FOR UNKNOWN INDICATION
     Dosage: 1 DOSAGE FORMS DAILY;
     Route: 048
     Dates: end: 20181223
  4. CELLCEPT [Suspect]
     Active Substance: MYCOPHENOLATE MOFETIL\MYCOPHENOLATE MOFETIL HYDROCHLORIDE
     Indication: RENAL TRANSPLANT
     Dosage: 2 DOSAGE FORMS DAILY;
     Route: 048
     Dates: end: 20181219
  5. LINEZOLIDE [Suspect]
     Active Substance: LINEZOLID
     Indication: OSTEITIS
     Dosage: 1200 MILLIGRAM DAILY;
     Route: 048
     Dates: start: 20181127, end: 20181219
  6. RILMENIDINE [Concomitant]
     Active Substance: RILMENIDINE
  7. ISOPHANE INSULIN [Suspect]
     Active Substance: INSULIN NOS
     Indication: DIABETES MELLITUS
     Dosage: 6 IU (INTERNATIONAL UNIT) DAILY;
     Route: 058
     Dates: end: 20181224
  8. ELIQUIS [Suspect]
     Active Substance: APIXABAN
     Indication: ATRIAL FIBRILLATION
     Dosage: 2 DOSAGE FORMS DAILY;
     Route: 048
     Dates: end: 20181219
  9. HYDROCHLOROTHIAZIDE. [Concomitant]
     Active Substance: HYDROCHLOROTHIAZIDE
  10. OXYCODONE [Concomitant]
     Active Substance: OXYCODONE
  11. EUPRESSYL [Concomitant]
     Active Substance: URAPIDIL
  12. IRBESARTAN. [Concomitant]
     Active Substance: IRBESARTAN
  13. PRAVASTATINE SODIQUE [Concomitant]
     Active Substance: PRAVASTATIN SODIUM
  14. ADVAGRAF [Concomitant]
     Active Substance: TACROLIMUS
  15. DIFFU K, G?LULE [Concomitant]
     Active Substance: POTASSIUM CHLORIDE
  16. BISOPROLOL (HEMIFUMARATE DE) [Concomitant]
     Active Substance: BISOPROLOL FUMARATE
  17. FUROSEMIDE. [Concomitant]
     Active Substance: FUROSEMIDE
  18. NICORANDIL [Concomitant]
     Active Substance: NICORANDIL
  19. PREDNISONE. [Concomitant]
     Active Substance: PREDNISONE
  20. CIPROFLOXACINE [Concomitant]
     Active Substance: CIPROFLOXACIN
  21. ABSTRAL 200 MICROGRAMMES, COMPRIM? SUBLINGUAL [Concomitant]
  22. PIPERACILLINE SODIQUE [Concomitant]
     Active Substance: PIPERACILLIN
  23. AMLOR [Suspect]
     Active Substance: AMLODIPINE BESYLATE
     Indication: HYPERTENSION
     Dosage: 1 DOSAGE FORMS DAILY;
     Route: 048
     Dates: end: 20181219

REACTIONS (2)
  - Pancytopenia [Recovered/Resolved]
  - Epistaxis [Recovered/Resolved]

NARRATIVE: CASE EVENT DATE: 20181219
